FAERS Safety Report 7918991-0 (Version None)
Quarter: 2011Q4

REPORT INFORMATION
  Report Type: 
  Country: None (occurrence: None)
  Receive Date: 20111116
  Receipt Date: 20111107
  Transmission Date: 20120403
  Serious: Yes (Hospitalization, Other)
  Sender: FDA-Public Use
  Company Number: US-ASTRAZENECA-2009UW13834

PATIENT
  Age: 77 Year
  Sex: Female

DRUGS (7)
  1. CRESTOR [Suspect]
     Route: 048
     Dates: start: 20090101
  2. LEXAPRO [Concomitant]
  3. METROPHIL [Concomitant]
  4. PAVALIN [Concomitant]
  5. LIPONTIL [Concomitant]
  6. LISINOPRIL [Suspect]
     Route: 048
  7. ASPIRIN [Concomitant]

REACTIONS (5)
  - ILL-DEFINED DISORDER [None]
  - ARTHROPATHY [None]
  - MYOCARDIAL INFARCTION [None]
  - PNEUMONIA [None]
  - ANGINA PECTORIS [None]
